FAERS Safety Report 9684091 (Version 1)
Quarter: 2013Q4

REPORT INFORMATION
  Report Type: Spontaneous
  Country: DE (occurrence: DE)
  Receive Date: 20131112
  Receipt Date: 20131112
  Transmission Date: 20140711
  Serious: Yes (Other)
  Sender: FDA-Public Use
  Company Number: DE-ASTRAZENECA-2013SE81793

PATIENT
  Age: 62 Year
  Sex: Female

DRUGS (17)
  1. QUETIAPIN [Suspect]
     Route: 048
     Dates: start: 20130503
  2. RAMIPRIL [Interacting]
     Route: 048
     Dates: start: 20130411
  3. RAMIPRIL [Interacting]
     Route: 048
     Dates: start: 20130501
  4. MIRTAZAPIN [Interacting]
     Route: 048
     Dates: start: 20130406
  5. HCT HEXAL [Interacting]
     Route: 048
     Dates: start: 20130412
  6. LITHIUM [Interacting]
  7. QUINOLONE NOS [Interacting]
     Route: 048
     Dates: start: 20130426
  8. QUINOLONES [Interacting]
     Route: 048
     Dates: start: 20130429
  9. QUINOLONES [Interacting]
     Route: 048
     Dates: start: 20130502
  10. QUINOLONES [Interacting]
     Route: 048
     Dates: start: 20130503
  11. ELONTRIL [Interacting]
     Route: 048
     Dates: start: 20130418
  12. LORAZEPAM [Concomitant]
     Route: 048
     Dates: start: 20130406
  13. CARVEDILOL [Concomitant]
     Route: 048
     Dates: start: 20130409
  14. PANTOPRAZOL [Concomitant]
     Route: 048
     Dates: start: 20130406
  15. TRAMAL [Concomitant]
     Route: 048
     Dates: start: 20130406
  16. ZOPICLONE [Concomitant]
     Route: 048
     Dates: start: 20130406
  17. L-THYROXIN [Concomitant]
     Route: 048
     Dates: start: 20130423

REACTIONS (2)
  - Drug interaction [Recovered/Resolved]
  - Delirium [Recovered/Resolved]
